FAERS Safety Report 15145354 (Version 4)
Quarter: 2019Q2

REPORT INFORMATION
  Report Type: Spontaneous
  Country: US (occurrence: US)
  Receive Date: 20180713
  Receipt Date: 20190606
  Transmission Date: 20190711
  Serious: No
  Sender: FDA-Public Use
  Company Number: US-INTERCEPT-PMOCA2018000641

PATIENT
  Age: 64 Year
  Sex: Female

DRUGS (8)
  1. ESCITALOPRAM [Concomitant]
     Active Substance: ESCITALOPRAM OXALATE
  2. OCALIVA [Suspect]
     Active Substance: OBETICHOLIC ACID
     Dosage: 5 MG, QD
     Route: 048
     Dates: start: 20181129
  3. OCALIVA [Suspect]
     Active Substance: OBETICHOLIC ACID
     Indication: PRIMARY BILIARY CHOLANGITIS
     Dosage: 5 MG, QD
     Route: 048
     Dates: start: 20180118, end: 201808
  4. OCALIVA [Suspect]
     Active Substance: OBETICHOLIC ACID
     Dosage: 10 MG, 3X/WK
     Route: 048
     Dates: start: 20190119
  5. CHOLESTYRAMIN [Concomitant]
     Active Substance: CHOLESTYRAMINE
  6. URSODEOXYCHOLIC ACID [Concomitant]
     Active Substance: URSODIOL
     Dosage: 900 MG, BID
     Dates: start: 20170906
  7. OCALIVA [Suspect]
     Active Substance: OBETICHOLIC ACID
     Dosage: 10 MG, 2X/WK
     Route: 048
  8. OCALIVA [Suspect]
     Active Substance: OBETICHOLIC ACID
     Dosage: 10 MG, QD
     Route: 048
     Dates: start: 20190116

REACTIONS (11)
  - Initial insomnia [Unknown]
  - Abdominal pain upper [Unknown]
  - Faeces discoloured [Not Recovered/Not Resolved]
  - Malaise [Unknown]
  - Frequent bowel movements [Not Recovered/Not Resolved]
  - Hepatic enzyme abnormal [Unknown]
  - Pyrexia [Unknown]
  - Pruritus [Unknown]
  - Diarrhoea [Not Recovered/Not Resolved]
  - Insurance issue [Unknown]
  - Nausea [Unknown]

NARRATIVE: CASE EVENT DATE: 2018
